FAERS Safety Report 6544821-8 (Version None)
Quarter: 2010Q1

REPORT INFORMATION
  Report Type: 
  Country: None (occurrence: None)
  Receive Date: 20100121
  Receipt Date: 20100108
  Transmission Date: 20100710
  Serious: Yes (Other)
  Sender: FDA-Public Use
  Company Number: US-JNJFOC-20100103944

PATIENT
  Age: 61 Year
  Sex: Female
  Weight: 58.97 kg

DRUGS (3)
  1. NUCYNTA [Suspect]
     Indication: BACK PAIN
     Dosage: PRESCRIBED 1-2/4-6 H
     Route: 048
  2. PERCOCET [Suspect]
     Indication: BACK PAIN
     Dosage: TOOK TOO MANY
     Route: 065
  3. FLEXERIL [Suspect]
     Indication: BACK PAIN
     Route: 065

REACTIONS (2)
  - DELUSION [None]
  - OVERDOSE [None]
